FAERS Safety Report 7592452-3 (Version None)
Quarter: 2011Q3

REPORT INFORMATION
  Report Type: 
  Country: None (occurrence: None)
  Receive Date: 20110706
  Receipt Date: 20110624
  Transmission Date: 20111222
  Serious: Yes (Life-Threatening, Hospitalization, Other)
  Sender: FDA-Public Use
  Company Number: US-BAYER-2011-024100

PATIENT
  Sex: Female
  Weight: 97.506 kg

DRUGS (5)
  1. YAZ [Suspect]
     Indication: PREMENSTRUAL SYNDROME
     Dosage: UNK
     Dates: start: 20070701, end: 20081001
  2. SYNTHROID [Concomitant]
     Indication: HYPOTHYROIDISM
     Dosage: UNK
     Dates: start: 20081001
  3. AVAPRO [Concomitant]
     Indication: BLOOD PRESSURE INCREASED
     Dosage: UNK
     Dates: start: 20081001
  4. ADDERALL 10 [Concomitant]
     Indication: UNEVALUABLE EVENT
     Dosage: UNK
     Dates: start: 20090701
  5. YAZ [Suspect]

REACTIONS (6)
  - CEREBROVASCULAR ACCIDENT [None]
  - PAIN [None]
  - INJURY [None]
  - GALLBLADDER DISORDER [None]
  - BILIARY COLIC [None]
  - GENERAL PHYSICAL HEALTH DETERIORATION [None]
